FAERS Safety Report 5762299-9 (Version None)
Quarter: 2008Q2

REPORT INFORMATION
  Report Type: 
  Country: None (occurrence: None)
  Receive Date: 20080609
  Receipt Date: 20080604
  Transmission Date: 20081010
  Serious: Yes (Other)
  Sender: FDA-Public Use
  Company Number: IT-BAYER-200817846GPV

PATIENT
  Age: 58 Year
  Sex: Female

DRUGS (3)
  1. CEMIRIT (ACETYLSALICYLIC ACID) [Suspect]
     Indication: BACK PAIN
     Dosage: TOTAL DAILY DOSE: 800 MG  UNIT DOSE: 800 MG
     Route: 048
     Dates: start: 20080421, end: 20080421
  2. NORVASC [Suspect]
     Indication: ESSENTIAL HYPERTENSION
     Dosage: TOTAL DAILY DOSE: 5 MG  UNIT DOSE: 5 MG
     Route: 048
     Dates: start: 20080402, end: 20080423
  3. AULIN (NIMESULIDE) [Suspect]
     Indication: INFLUENZA
     Dosage: TOTAL DAILY DOSE: 200 MG  UNIT DOSE: 100 MG
     Route: 048
     Dates: start: 20080422, end: 20080423

REACTIONS (1)
  - LEUKOCYTOCLASTIC VASCULITIS [None]
